FAERS Safety Report 7502699-X (Version None)
Quarter: 2011Q2

REPORT INFORMATION
  Report Type: 
  Country: None (occurrence: None)
  Receive Date: 20110525
  Receipt Date: 20110513
  Transmission Date: 20111010
  Serious: Yes (Death)
  Sender: FDA-Public Use
  Company Number: AU-PFIZER INC-2011093269

PATIENT
  Age: 63 Year
  Sex: Male

DRUGS (5)
  1. AMOXICILLIN [Concomitant]
     Indication: PROPHYLAXIS
     Dosage: 250 MG, 1X/DAY
     Route: 048
     Dates: start: 20101001
  2. SUNITINIB MALATE [Suspect]
     Dosage: 50 MG, 1X/DAY
     Dates: start: 20110311, end: 20110407
  3. EVEROLIMUS [Suspect]
     Indication: METASTATIC RENAL CELL CARCINOMA
     Dosage: 10 MG, 1X/DAY
     Dates: start: 20110128, end: 20110303
  4. SUNITINIB MALATE [Suspect]
     Indication: METASTATIC RENAL CELL CARCINOMA
     Dosage: 50 MG, 1X/DAY
     Dates: start: 20101217, end: 20110113
  5. RAMIPRIL [Concomitant]
     Indication: PRODUCT USED FOR UNKNOWN INDICATION
     Dosage: 5.0 MG, 1X/DAY
     Route: 048
     Dates: start: 20100101

REACTIONS (2)
  - DEATH [None]
  - CARDIAC FAILURE CONGESTIVE [None]
